FAERS Safety Report 11815254 (Version 1)
Quarter: 2015Q4

REPORT INFORMATION
  Report Type: Spontaneous
  Country: US (occurrence: US)
  Receive Date: 20151209
  Receipt Date: 20151209
  Transmission Date: 20160305
  Serious: No
  Sender: FDA-Public Use
  Company Number: US-SA-2015SA190002

PATIENT
  Age: 56 Year
  Sex: Male

DRUGS (2)
  1. TOUJEO [Suspect]
     Active Substance: INSULIN GLARGINE
     Indication: TYPE 1 DIABETES MELLITUS
     Dosage: DOSE:30 (UNITS UNSPECIFIED)
     Route: 058
     Dates: start: 20150810, end: 20151109
  2. SOLOSTAR [Concomitant]
     Active Substance: DEVICE
     Indication: TYPE 1 DIABETES MELLITUS
     Dates: start: 20151008, end: 20151111

REACTIONS (2)
  - Rash generalised [Recovering/Resolving]
  - Urticaria [Recovering/Resolving]
